FAERS Safety Report 7082562-1 (Version None)
Quarter: 2010Q3

REPORT INFORMATION
  Report Type: 
  Country: None (occurrence: None)
  Receive Date: 20100929
  Receipt Date: 20100701
  Transmission Date: 20110219
  Serious: No
  Sender: FDA-Public Use
  Company Number: US-WYE-H16277810

PATIENT
  Sex: Female

DRUGS (2)
  1. PRISTIQ [Suspect]
  2. EFFEXOR XR [Suspect]

REACTIONS (1)
  - DRUG EXPOSURE DURING PREGNANCY [None]
